FAERS Safety Report 20558212 (Version 8)
Quarter: 2022Q4

REPORT INFORMATION
  Report Type: Report from Study
  Country: CO (occurrence: CO)
  Receive Date: 20220307
  Receipt Date: 20221104
  Transmission Date: 20230113
  Serious: Yes (Other)
  Sender: FDA-Public Use
  Company Number: CO-SA-2022SA069912

PATIENT
  Age: 58 Year
  Sex: Female

DRUGS (13)
  1. IMIGLUCERASE [Suspect]
     Active Substance: IMIGLUCERASE
     Indication: Gaucher^s disease
     Dosage: 10 DF (VIALS), QOW
     Route: 042
     Dates: start: 20031001
  2. PREGABALIN [Suspect]
     Active Substance: PREGABALIN
     Indication: Back pain
     Dosage: 1 DF, HS
     Route: 048
  3. PREGABALIN [Suspect]
     Active Substance: PREGABALIN
     Indication: Headache
  4. PREGABALIN [Suspect]
     Active Substance: PREGABALIN
     Indication: Neck pain
  5. PREGABALIN [Suspect]
     Active Substance: PREGABALIN
     Indication: Ear pain
  6. PREGABALIN [Suspect]
     Active Substance: PREGABALIN
     Indication: Chest pain
  7. PREGABALIN [Suspect]
     Active Substance: PREGABALIN
     Indication: Pain in extremity
  8. LOSARTAN [Concomitant]
     Active Substance: LOSARTAN
     Indication: Hypertension
     Dosage: UNK
     Route: 065
  9. AMLODIPINE [Concomitant]
     Active Substance: AMLODIPINE BESYLATE
     Indication: Hypertension
     Dosage: UNK
     Route: 065
  10. BECLOMETHASONE [Concomitant]
     Active Substance: BECLOMETHASONE
  11. LEVOTHYROXINE [Concomitant]
     Active Substance: LEVOTHYROXINE
     Indication: Thyroid disorder
     Dosage: 50 UG
     Route: 065
  12. AMOXICILLIN [Concomitant]
     Active Substance: AMOXICILLIN
  13. CODEINE [Concomitant]
     Active Substance: CODEINE
     Indication: Pain
     Dosage: UNK, PRN

REACTIONS (28)
  - Angina pectoris [Not Recovered/Not Resolved]
  - Arthralgia [Not Recovered/Not Resolved]
  - Somnolence [Recovered/Resolved]
  - Back pain [Not Recovered/Not Resolved]
  - Headache [Not Recovered/Not Resolved]
  - Pruritus [Not Recovered/Not Resolved]
  - Nausea [Unknown]
  - Heart rate increased [Unknown]
  - Vision blurred [Unknown]
  - Eye pain [Unknown]
  - Memory impairment [Unknown]
  - Speech disorder [Unknown]
  - Neck pain [Recovering/Resolving]
  - Dizziness postural [Unknown]
  - Ear pain [Not Recovered/Not Resolved]
  - Chest pain [Recovering/Resolving]
  - Somnolence [Unknown]
  - Pain in extremity [Not Recovered/Not Resolved]
  - Gait disturbance [Not Recovered/Not Resolved]
  - Arthralgia [Not Recovered/Not Resolved]
  - Hypoacusis [Not Recovered/Not Resolved]
  - Swelling face [Not Recovered/Not Resolved]
  - Eye irritation [Not Recovered/Not Resolved]
  - Cough [Not Recovered/Not Resolved]
  - Tinnitus [Unknown]
  - Abdominal pain upper [Not Recovered/Not Resolved]
  - Diarrhoea [Unknown]
  - Headache [Not Recovered/Not Resolved]

NARRATIVE: CASE EVENT DATE: 20220101
